FAERS Safety Report 11457203 (Version 1)
Quarter: 2015Q3

REPORT INFORMATION
  Report Type: Report from Study
  Country: DE (occurrence: DE)
  Receive Date: 20150904
  Receipt Date: 20150904
  Transmission Date: 20151125
  Serious: Yes (Death)
  Sender: FDA-Public Use
  Company Number: DE-BEH-2015053664

PATIENT
  Age: 78 Year
  Sex: Male
  Weight: 70 kg

DRUGS (6)
  1. RITUXIMAB [Concomitant]
     Active Substance: RITUXIMAB
     Dates: end: 20100527
  2. PRIVIGEN [Suspect]
     Active Substance: HUMAN IMMUNOGLOBULIN G
     Dosage: INFUSION RATE: MIN. 1.20 ML/MIN, MAX. 1.45 ML/MIN
     Dates: start: 20101111, end: 20101111
  3. PRIVIGEN [Suspect]
     Active Substance: HUMAN IMMUNOGLOBULIN G
     Dosage: INFUSION RATE: MIN. 1.20 ML/MIN, MAX. 1.40 ML/MIN
     Dates: start: 20101210, end: 20101210
  4. PRIVIGEN [Suspect]
     Active Substance: HUMAN IMMUNOGLOBULIN G
     Indication: SECONDARY IMMUNODEFICIENCY
     Dosage: INFUSION RATE: MIN. 1.20 ML/MIN, MAX. 1.40 ML/MIN
     Dates: start: 20101018, end: 20101018
  5. PRIVIGEN [Suspect]
     Active Substance: HUMAN IMMUNOGLOBULIN G
     Indication: CHRONIC LYMPHOCYTIC LEUKAEMIA
     Dosage: INFUSION RATE: MIN. 1.20 ML/MIN, MAX. 1.40 ML/MIN
     Dates: start: 20110114, end: 20110114
  6. RITUXIMAB [Concomitant]
     Active Substance: RITUXIMAB
     Indication: CHRONIC LYMPHOCYTIC LEUKAEMIA
     Dates: start: 20100107, end: 20100527

REACTIONS (1)
  - Death [Fatal]

NARRATIVE: CASE EVENT DATE: 20110115
